FAERS Safety Report 4589156-8 (Version None)
Quarter: 2005Q1

REPORT INFORMATION
  Report Type: 
  Country: None (occurrence: None)
  Receive Date: 20050215
  Receipt Date: 20050215
  Transmission Date: 20050727
  Serious: Yes (Other)
  Sender: FDA-Public Use
  Company Number: None

PATIENT
  Age: 4 Year
  Sex: Male
  Weight: 18.1439 kg

DRUGS (2)
  1. CHILDREN'S MOTRIN [Suspect]
     Indication: EAR INFECTION
     Dosage: 1 TSP 6 HRS ORAL
     Route: 048
     Dates: start: 20040521, end: 20040522
  2. CHILDREN'S MOTRIN [Suspect]
     Indication: PYREXIA
     Dosage: 1 TSP 6 HRS ORAL
     Route: 048
     Dates: start: 20040521, end: 20040522

REACTIONS (8)
  - BLISTER [None]
  - COMA [None]
  - EYE SWELLING [None]
  - HYPOVENTILATION [None]
  - LETHARGY [None]
  - LIP DISCOLOURATION [None]
  - PYREXIA [None]
  - RASH MACULO-PAPULAR [None]
